FAERS Safety Report 23737258 (Version 1)
Quarter: 2024Q2

REPORT INFORMATION
  Report Type: Spontaneous
  Country: US (occurrence: None)
  Receive Date: 20240412
  Receipt Date: 20240412
  Transmission Date: 20240715
  Serious: Yes (Hospitalization)
  Sender: FDA-Public Use
  Company Number: None

PATIENT
  Age: 58 Year
  Sex: Male
  Weight: 136.7 kg

DRUGS (5)
  1. FLUOROURACIL [Suspect]
     Active Substance: FLUOROURACIL
     Dates: end: 20240401
  2. XELODA [Suspect]
     Active Substance: CAPECITABINE
  3. CAMPTOSAR [Suspect]
     Active Substance: IRINOTECAN HYDROCHLORIDE
  4. LEUCOVORIN CALCIUM [Suspect]
     Active Substance: LEUCOVORIN CALCIUM
  5. ELOXATIN [Suspect]
     Active Substance: OXALIPLATIN

REACTIONS (2)
  - Pulmonary embolism [None]
  - Superficial vein thrombosis [None]

NARRATIVE: CASE EVENT DATE: 20240409
